FAERS Safety Report 12045461 (Version 2)
Quarter: 2019Q1

REPORT INFORMATION
  Report Type: Spontaneous
  Country: US (occurrence: US)
  Receive Date: 20160208
  Receipt Date: 20190208
  Transmission Date: 20190417
  Serious: No
  Sender: FDA-Public Use
  Company Number: US-AEGERION PHARMACEUTICAL INC.-AEGR001688

PATIENT

DRUGS (3)
  1. MYALEPT [Suspect]
     Active Substance: METRELEPTIN
     Indication: DIABETES MELLITUS
  2. MYALEPT [Suspect]
     Active Substance: METRELEPTIN
     Indication: CONGENITAL GENERALISED LIPODYSTROPHY
     Dosage: UNK
     Route: 065
     Dates: start: 20131024
  3. MYALEPT [Suspect]
     Active Substance: METRELEPTIN
     Indication: HYPERTRIGLYCERIDAEMIA

REACTIONS (2)
  - Treatment noncompliance [Unknown]
  - Drug ineffective [Unknown]
